FAERS Safety Report 9657950 (Version 2)
Quarter: 2013Q4

REPORT INFORMATION
  Report Type: Spontaneous
  Country: CO (occurrence: CO)
  Receive Date: 20131030
  Receipt Date: 20131030
  Transmission Date: 20140711
  Serious: Yes (Other)
  Sender: FDA-Public Use
  Company Number: CO-BAXTER-2013BAX035433

PATIENT
  Age: 67 Year
  Sex: Female

DRUGS (3)
  1. SOLUCION RINGER USP [Suspect]
     Indication: COLONOSCOPY
     Dosage: 50CC
     Route: 042
     Dates: start: 20130809, end: 20130809
  2. ENALAPRIL [Concomitant]
     Indication: PRODUCT USED FOR UNKNOWN INDICATION
     Route: 065
  3. TRIMEBUTINE [Concomitant]
     Indication: PRODUCT USED FOR UNKNOWN INDICATION
     Route: 065

REACTIONS (2)
  - Pruritus [Recovered/Resolved]
  - Erythema [Recovered/Resolved]
